FAERS Safety Report 19371413 (Version 2)
Quarter: 2021Q3

REPORT INFORMATION
  Report Type: Spontaneous
  Country: CO (occurrence: CO)
  Receive Date: 20210604
  Receipt Date: 20210715
  Transmission Date: 20211014
  Serious: No
  Sender: FDA-Public Use
  Company Number: CO-AMGEN-COLSP2021079534

PATIENT
  Age: 59 Year
  Sex: Female

DRUGS (2)
  1. NEULASTA [Suspect]
     Active Substance: PEGFILGRASTIM
     Indication: OFF LABEL USE
  2. NEULASTA [Suspect]
     Active Substance: PEGFILGRASTIM
     Indication: OVARIAN CANCER
     Dosage: UNK UNK, AFTER CHEMO
     Route: 065

REACTIONS (2)
  - Device malfunction [Unknown]
  - Off label use [Unknown]

NARRATIVE: CASE EVENT DATE: 20210519
